FAERS Safety Report 23117060 (Version 1)
Quarter: 2023Q4

REPORT INFORMATION
  Report Type: Spontaneous
  Country: US (occurrence: None)
  Receive Date: 20231025
  Receipt Date: 20231025
  Transmission Date: 20240110
  Serious: Yes (Hospitalization)
  Sender: FDA-Public Use
  Company Number: None

PATIENT

DRUGS (8)
  1. REPATHA [Suspect]
     Active Substance: EVOLOCUMAB
     Dosage: FREQUENCY : EVERY OTHER WEEK;?
     Route: 058
     Dates: start: 20230215
  2. ATORVASTATIN [Concomitant]
     Active Substance: ATORVASTATIN
  3. ATOVAQ/PROGU [Concomitant]
  4. BIOTIN [Concomitant]
     Active Substance: BIOTIN
  5. LATANOPROST [Concomitant]
     Active Substance: LATANOPROST
  6. METOPROL SUC [Concomitant]
  7. MULTIVITAMIN ADULTS [Concomitant]
  8. VITAMIN D [Concomitant]
     Active Substance: VITAMIN D NOS

REACTIONS (2)
  - Therapy interrupted [None]
  - Hospitalisation [None]
